FAERS Safety Report 16897918 (Version 1)
Quarter: 2019Q4

REPORT INFORMATION
  Report Type: Spontaneous
  Country: GB (occurrence: GB)
  Receive Date: 20191009
  Receipt Date: 20191009
  Transmission Date: 20200122
  Serious: Yes (Life-Threatening)
  Sender: FDA-Public Use
  Company Number: GB-SA-2019SA277592

PATIENT
  Age: 18 Year
  Sex: Male
  Weight: 36 kg

DRUGS (2)
  1. EPIDUO [Concomitant]
     Active Substance: ADAPALENE\BENZOYL PEROXIDE
     Dosage: 1 DF, QD, APPLY AS DIRECTED BY SPECIALIST
     Route: 065
     Dates: start: 20181224
  2. FEXOFENADINE HYDROCHLORIDE. [Suspect]
     Active Substance: FEXOFENADINE HYDROCHLORIDE
     Dosage: 120 MG
     Dates: start: 20190904

REACTIONS (2)
  - Chest pain [Unknown]
  - Swelling face [Unknown]

NARRATIVE: CASE EVENT DATE: 20190904
